FAERS Safety Report 24995919 (Version 1)
Quarter: 2025Q1

REPORT INFORMATION
  Report Type: Spontaneous
  Country: US (occurrence: US)
  Receive Date: 20250221
  Receipt Date: 20250221
  Transmission Date: 20250408
  Serious: No
  Sender: CATALYST PHARMA
  Company Number: US-CATALYST PHARMACEUTICALS-US-CATA-24-01269

PATIENT
  Age: 2 Year
  Sex: Male
  Weight: 17.234 kg

DRUGS (3)
  1. AGAMREE [Suspect]
     Active Substance: VAMOROLONE
     Indication: Duchenne muscular dystrophy
     Dosage: 2 ML ONCE A DAY
     Route: 048
     Dates: start: 20240426
  2. VITAMIN D [Concomitant]
     Active Substance: VITAMIN D NOS
     Indication: Hypovitaminosis
     Dosage: 30 MCG PER ML ONCE A DAY
     Route: 048
  3. IMMUNE SUPPORT [Concomitant]
     Indication: Immune system disorder
     Dosage: TABLET ONCE A DAY
     Route: 065

REACTIONS (4)
  - Rash macular [Not Recovered/Not Resolved]
  - Anger [Not Recovered/Not Resolved]
  - Abnormal behaviour [Not Recovered/Not Resolved]
  - Aggression [Not Recovered/Not Resolved]

NARRATIVE: CASE EVENT DATE: 20240401
